FAERS Safety Report 8433039 (Version 5)
Quarter: 2013Q3

REPORT INFORMATION
  Report Type: Spontaneous
  Country: JP (occurrence: JP)
  Receive Date: 20120229
  Receipt Date: 20130909
  Transmission Date: 20140515
  Serious: Yes (Life-Threatening, Hospitalization, Other)
  Sender: FDA-Public Use
  Company Number: JP-ROCHE-1043613

PATIENT
  Age: 77 Year
  Sex: Male
  Weight: 66 kg

DRUGS (16)
  1. ACTEMRA [Suspect]
     Indication: MYELODYSPLASTIC SYNDROME
     Route: 041
     Dates: start: 20111005, end: 20111005
  2. ACTEMRA [Suspect]
     Indication: BEHCET^S SYNDROME
     Route: 041
     Dates: start: 20111110, end: 20111110
  3. ACTEMRA [Suspect]
     Indication: OFF LABEL USE
     Route: 041
     Dates: start: 20111201, end: 20120202
  4. PREDNISOLONE [Concomitant]
     Indication: ERYTHEMA NODOSUM
     Dosage: IT BEGINS BY 25MG/A DAY, AND IT INCREASES AND DECREASES THEREAFTER.
     Route: 048
     Dates: start: 200909, end: 201201
  5. PREDNISOLONE [Concomitant]
     Indication: ERYTHEMA NODOSUM
     Route: 048
     Dates: start: 20120306, end: 20120402
  6. PREDNISOLONE [Concomitant]
     Indication: ERYTHEMA NODOSUM
     Route: 048
     Dates: start: 20120403
  7. INSULIN [Concomitant]
     Indication: TYPE 2 DIABETES MELLITUS
     Dosage: DOSAGE IS UNCERTAIN.
     Route: 058
     Dates: start: 201001
  8. COLCHICINE [Concomitant]
     Indication: BEHCET^S SYNDROME
     Route: 048
     Dates: start: 201102
  9. COLCHICINE [Concomitant]
     Indication: BEHCET^S SYNDROME
     Route: 048
     Dates: start: 20120302
  10. SALAZOSULFAPYRIDINE [Concomitant]
     Indication: BEHCET^S SYNDROME
     Route: 048
     Dates: start: 2010
  11. SALAZOSULFAPYRIDINE [Concomitant]
     Route: 048
     Dates: start: 20110411
  12. GASTER D [Concomitant]
     Indication: PROPHYLAXIS
     Route: 048
     Dates: start: 20110217, end: 20130228
  13. SALAZOPYRIN [Concomitant]
     Indication: BEHCET^S SYNDROME
     Route: 065
     Dates: start: 20110411
  14. CLINORIL [Concomitant]
     Indication: ABDOMINAL PAIN
     Route: 048
     Dates: start: 20120202, end: 20120206
  15. LASIX [Concomitant]
     Indication: OEDEMA
     Route: 048
     Dates: start: 20111128
  16. LASIX [Concomitant]
     Route: 065
     Dates: start: 20120206

REACTIONS (7)
  - Cellulitis [Unknown]
  - Small intestinal perforation [Recovered/Resolved]
  - Peritonitis [Recovered/Resolved]
  - Blood beta-D-glucan increased [Unknown]
  - Benign prostatic hyperplasia [Unknown]
  - Oedema [Unknown]
  - Back pain [Unknown]
